FAERS Safety Report 6505816-3 (Version None)
Quarter: 2009Q4

REPORT INFORMATION
  Report Type: 
  Country: None (occurrence: None)
  Receive Date: 20091217
  Receipt Date: 20091217
  Transmission Date: 20100525
  Serious: Yes (Other)
  Sender: FDA-Public Use
  Company Number: None

PATIENT
  Age: 41 Year
  Sex: Female
  Weight: 68.0396 kg

DRUGS (1)
  1. COMPAZINE [Suspect]
     Indication: NAUSEA
     Dosage: 5 MG ONCE IV
     Route: 042
     Dates: start: 20091216, end: 20091216

REACTIONS (8)
  - ANXIETY [None]
  - FEELING ABNORMAL [None]
  - INSOMNIA [None]
  - NAUSEA [None]
  - PANIC REACTION [None]
  - RESTLESSNESS [None]
  - RETCHING [None]
  - SYNCOPE [None]
